FAERS Safety Report 7472900-X (Version None)
Quarter: 2011Q2

REPORT INFORMATION
  Report Type: 
  Country: None (occurrence: None)
  Receive Date: 20110503
  Receipt Date: 20110418
  Transmission Date: 20111010
  Serious: Yes (Hospitalization)
  Sender: FDA-Public Use
  Company Number: 031389

PATIENT
  Sex: Male
  Weight: 60.3 kg

DRUGS (10)
  1. FOLIC ACID [Concomitant]
  2. PRILOSEC [Concomitant]
  3. ZYRTEC [Concomitant]
  4. PREDNISONE TAB [Concomitant]
  5. CIMZIA [Suspect]
     Indication: CROHN'S DISEASE
     Dosage: (400 MG 1X/MONTH SUBCUTANEOUS)
     Route: 058
     Dates: start: 20101223
  6. METHOTREXATE SODIUM [Concomitant]
  7. FLAGYL [Concomitant]
  8. MULTI-VITAMINS [Concomitant]
  9. CYANOCOBALAMIN [Concomitant]
  10. BOOST [Concomitant]

REACTIONS (16)
  - HAEMORRHAGE [None]
  - INCREASED UPPER AIRWAY SECRETION [None]
  - PLATELET COUNT INCREASED [None]
  - MICROCYTIC ANAEMIA [None]
  - COLITIS [None]
  - IRON DEFICIENCY ANAEMIA [None]
  - INTESTINAL ANASTOMOSIS COMPLICATION [None]
  - WEIGHT DECREASED [None]
  - HYPOALBUMINAEMIA [None]
  - CONDITION AGGRAVATED [None]
  - COUGH [None]
  - CROHN'S DISEASE [None]
  - BRONCHITIS [None]
  - DEHYDRATION [None]
  - BLOOD CALCIUM DECREASED [None]
  - FAECAL INCONTINENCE [None]
